FAERS Safety Report 26057628 (Version 1)
Quarter: 2025Q4

REPORT INFORMATION
  Report Type: Spontaneous
  Country: US (occurrence: None)
  Receive Date: 20251118
  Receipt Date: 20251118
  Transmission Date: 20260117
  Serious: No
  Sender: UCB
  Company Number: US-UCBSA-2025035311

PATIENT
  Age: 75 Year

DRUGS (3)
  1. VIMPAT [Suspect]
     Active Substance: LACOSAMIDE
     Indication: Epilepsy
     Dosage: 150 MILLIGRAM, ONCE DAILY (QD)
  2. VIMPAT [Suspect]
     Active Substance: LACOSAMIDE
     Dosage: 100 MILLIGRAM, 2X/DAY (BID)
  3. SYNTHROID [Concomitant]
     Active Substance: LEVOTHYROXINE SODIUM
     Indication: Thyroid disorder
     Dosage: UNK, ONCE DAILY (QD)

REACTIONS (9)
  - Insomnia [Recovered/Resolved]
  - Flatulence [Recovered/Resolved]
  - Amnesia [Recovered/Resolved]
  - Cognitive disorder [Unknown]
  - Photosensitivity reaction [Not Recovered/Not Resolved]
  - Fall [Recovered/Resolved]
  - Dyspnoea [Unknown]
  - Splinter [Recovered/Resolved]
  - Product dose omission in error [Unknown]
